FAERS Safety Report 18616637 (Version 1)
Quarter: 2020Q4

REPORT INFORMATION
  Report Type: Report from Study
  Country: US (occurrence: US)
  Receive Date: 20201215
  Receipt Date: 20201215
  Transmission Date: 20210114
  Serious: No
  Sender: FDA-Public Use
  Company Number: NVSC2020US329799

PATIENT
  Sex: Female

DRUGS (1)
  1. PIQRAY [Suspect]
     Active Substance: ALPELISIB
     Indication: PRODUCT USED FOR UNKNOWN INDICATION
     Dosage: UNK
     Route: 048

REACTIONS (8)
  - Limb discomfort [Unknown]
  - Frequent bowel movements [Unknown]
  - Blood glucose increased [Unknown]
  - Diarrhoea [Unknown]
  - Abnormal dreams [Unknown]
  - Peripheral swelling [Unknown]
  - Anal incontinence [Unknown]
  - Fatigue [Unknown]
